FAERS Safety Report 14216256 (Version 1)
Quarter: 2017Q4

REPORT INFORMATION
  Report Type: Spontaneous
  Country: BR (occurrence: BR)
  Receive Date: 20171122
  Receipt Date: 20171122
  Transmission Date: 20180321
  Serious: Yes (Hospitalization)
  Sender: FDA-Public Use
  Company Number: BR-MERCK KGAA-2034892

PATIENT
  Age: 60 Year
  Sex: Female

DRUGS (2)
  1. NEBILET [Concomitant]
     Active Substance: NEBIVOLOL
  2. NOVOTHYROX [Suspect]
     Active Substance: LEVOTHYROXINE SODIUM
     Indication: THYROID DISORDER
     Dates: start: 2017

REACTIONS (1)
  - Bone marrow disorder [None]

NARRATIVE: CASE EVENT DATE: 2017
